FAERS Safety Report 5966761-5 (Version None)
Quarter: 2008Q4

REPORT INFORMATION
  Report Type: 
  Country: None (occurrence: None)
  Receive Date: 20081125
  Receipt Date: 20081118
  Transmission Date: 20090506
  Serious: Yes (Other)
  Sender: FDA-Public Use
  Company Number: US-WYE-H06894808

PATIENT
  Sex: Male
  Weight: 77.18 kg

DRUGS (1)
  1. PRISTIQ [Suspect]
     Indication: DEPRESSION
     Route: 048
     Dates: start: 20081115, end: 20081116

REACTIONS (6)
  - DISORIENTATION [None]
  - DIZZINESS [None]
  - MOUTH INJURY [None]
  - NAUSEA [None]
  - SYNCOPE [None]
  - VOMITING [None]
